FAERS Safety Report 7736914-4 (Version None)
Quarter: 2011Q3

REPORT INFORMATION
  Report Type: 
  Country: None (occurrence: None)
  Receive Date: 20110908
  Receipt Date: 20110824
  Transmission Date: 20111222
  Serious: Yes (Life-Threatening, Hospitalization)
  Sender: FDA-Public Use
  Company Number: US-ALLERGAN-200404078

PATIENT
  Age: 24 Month
  Sex: Male
  Weight: 12.1 kg

DRUGS (1)
  1. ALPHAGAN [Suspect]
     Indication: ACCIDENTAL EXPOSURE
     Dosage: 2ML, SINGLE
     Route: 048

REACTIONS (2)
  - TOXICITY TO VARIOUS AGENTS [None]
  - ACCIDENTAL EXPOSURE [None]
